FAERS Safety Report 12323536 (Version 1)
Quarter: 2016Q2

REPORT INFORMATION
  Report Type: Spontaneous
  Country: US (occurrence: US)
  Receive Date: 20160502
  Receipt Date: 20160502
  Transmission Date: 20160815
  Serious: No
  Sender: FDA-Public Use
  Company Number: US-SHIRE-US201605023

PATIENT
  Sex: Female
  Weight: 53.97 kg

DRUGS (1)
  1. LIALDA [Suspect]
     Active Substance: MESALAMINE
     Indication: COLITIS ULCERATIVE
     Dosage: 3.6 MG, UNKNOWN
     Route: 048
     Dates: start: 201510

REACTIONS (6)
  - High density lipoprotein decreased [Unknown]
  - Flatulence [Unknown]
  - Adverse drug reaction [Unknown]
  - Nervousness [Unknown]
  - Non-cardiac chest pain [Unknown]
  - Liver function test increased [Unknown]
